FAERS Safety Report 7289494-4 (Version None)
Quarter: 2011Q1

REPORT INFORMATION
  Report Type: 
  Country: None (occurrence: None)
  Receive Date: 20110211
  Receipt Date: 20110207
  Transmission Date: 20110831
  Serious: Yes (Other)
  Sender: FDA-Public Use
  Company Number: SE-MERCK-1101SWE00020

PATIENT
  Age: 54 Year
  Sex: Male

DRUGS (14)
  1. CLOPIDOGREL BISULFATE [Concomitant]
     Route: 048
  2. ACETAMINOPHEN [Concomitant]
     Route: 048
  3. OMEPRAZOLE [Concomitant]
     Route: 048
  4. MOMETASONE FUROATE [Concomitant]
     Route: 055
  5. BUDESONIDE AND FORMOTEROL FUMARATE [Concomitant]
     Route: 055
  6. TADALAFIL [Concomitant]
     Route: 048
  7. JANUVIA [Suspect]
     Indication: DIABETES MELLITUS
     Route: 048
  8. CYANOCOBALAMIN AND FOLIC ACID AND PYRIDOXINE HYDROCHLORIDE [Concomitant]
     Route: 048
  9. ACETAMINOPHEN AND CODEINE PHOSPHATE [Concomitant]
     Route: 048
  10. UREA [Concomitant]
     Route: 061
  11. ATORVASTATIN CALCIUM [Concomitant]
     Route: 048
  12. WARFARIN SODIUM [Concomitant]
     Indication: DEEP VEIN THROMBOSIS
     Route: 048
  13. CETIRIZINE HYDROCHLORIDE [Concomitant]
     Route: 048
  14. CANDESARTAN CILEXETIL [Concomitant]
     Route: 048

REACTIONS (1)
  - DEPRESSION SUICIDAL [None]
